FAERS Safety Report 6984808-4 (Version None)
Quarter: 2010Q3

REPORT INFORMATION
  Report Type: 
  Country: None (occurrence: None)
  Receive Date: 20100915
  Receipt Date: 20100908
  Transmission Date: 20110219
  Serious: Yes (Hospitalization)
  Sender: FDA-Public Use
  Company Number: FR-WYE-H11477409

PATIENT
  Sex: Female
  Weight: 68 kg

DRUGS (3)
  1. NERATINIB [Suspect]
     Indication: NEOPLASM
     Route: 048
     Dates: start: 20090928
  2. IMODIUM [Concomitant]
     Indication: DIARRHOEA
     Dosage: NOT PROVIDED
     Dates: start: 20090929, end: 20091010
  3. TEMSIROLIMUS [Suspect]
     Indication: NEOPLASM
     Route: 042
     Dates: start: 20090928

REACTIONS (2)
  - DYSPNOEA [None]
  - PULMONARY HYPERTENSION [None]
